FAERS Safety Report 9713971 (Version 1)
Quarter: 2013Q4

REPORT INFORMATION
  Report Type: Spontaneous
  Country: US (occurrence: US)
  Receive Date: 20131126
  Receipt Date: 20131126
  Transmission Date: 20140711
  Serious: No
  Sender: FDA-Public Use
  Company Number: US-GILEAD-2008-0018346

PATIENT
  Age: 70 Year
  Sex: Female

DRUGS (12)
  1. LETAIRIS [Suspect]
     Indication: PULMONARY ARTERIAL HYPERTENSION
     Route: 048
     Dates: start: 20080918
  2. FUROSEMIDE [Concomitant]
     Indication: SWELLING
  3. LANTUS [Concomitant]
     Indication: DIABETES MELLITUS
  4. TOPROL XL [Concomitant]
     Indication: HYPERTENSION
  5. DIOVAN [Concomitant]
     Indication: HYPERTENSION
  6. NORVASC [Concomitant]
     Indication: HYPERTENSION
  7. PLAVIX [Concomitant]
     Indication: PROPHYLAXIS
  8. POTASSIUM CHLORIDE [Concomitant]
     Indication: HYPOKALAEMIA
  9. SPIRONOLACTONE [Concomitant]
     Indication: HYPERTENSION
  10. ASPIRIN [Concomitant]
     Indication: PROPHYLAXIS
  11. VITAMIN B-12 [Concomitant]
     Indication: SUPPLEMENTATION THERAPY
  12. CENTRUM [Concomitant]
     Indication: SUPPLEMENTATION THERAPY

REACTIONS (2)
  - Local swelling [Not Recovered/Not Resolved]
  - Dyspnoea [Not Recovered/Not Resolved]
